FAERS Safety Report 20788900 (Version 1)
Quarter: 2022Q2

REPORT INFORMATION
  Report Type: Other
  Country: CA (occurrence: CA)
  Receive Date: 20220505
  Receipt Date: 20220505
  Transmission Date: 20220720
  Serious: Yes (Other)
  Sender: FDA-Public Use
  Company Number: CA-APOTEX-2022AP006893

PATIENT
  Sex: Male

DRUGS (45)
  1. ACETAMINOPHEN\OXYCODONE HYDROCHLORIDE [Suspect]
     Active Substance: ACETAMINOPHEN\OXYCODONE HYDROCHLORIDE
     Indication: Neck pain
     Dosage: UNK
     Route: 048
  2. ACETAMINOPHEN\OXYCODONE HYDROCHLORIDE [Suspect]
     Active Substance: ACETAMINOPHEN\OXYCODONE HYDROCHLORIDE
     Indication: Injury
  3. ACETAMINOPHEN\OXYCODONE HYDROCHLORIDE [Suspect]
     Active Substance: ACETAMINOPHEN\OXYCODONE HYDROCHLORIDE
     Indication: Headache
  4. HYDROMORPHONE [Suspect]
     Active Substance: HYDROMORPHONE
     Indication: Headache
     Dosage: UNK
     Route: 048
  5. HYDROMORPHONE [Suspect]
     Active Substance: HYDROMORPHONE
     Indication: Neck pain
  6. HYDROMORPHONE [Suspect]
     Active Substance: HYDROMORPHONE
     Indication: Injury
  7. OXYCODONE [Suspect]
     Active Substance: OXYCODONE
     Indication: Neck pain
     Dosage: UNK
     Route: 048
  8. OXYCODONE [Suspect]
     Active Substance: OXYCODONE
     Indication: Injury
     Dosage: UNK
     Route: 065
  9. OXYCODONE [Suspect]
     Active Substance: OXYCODONE
     Indication: Headache
  10. TRAMADOL [Suspect]
     Active Substance: TRAMADOL
     Indication: Neck pain
     Dosage: UNK
     Route: 065
  11. TRAMADOL [Suspect]
     Active Substance: TRAMADOL
     Indication: Injury
  12. TRAMADOL [Suspect]
     Active Substance: TRAMADOL
     Indication: Headache
  13. ACETAMINOPHEN\OXYCODONE HYDROCHLORIDE\OXYCODONE TEREPHTHALATE [Suspect]
     Active Substance: ACETAMINOPHEN\OXYCODONE HYDROCHLORIDE\OXYCODONE TEREPHTHALATE
     Indication: Neck pain
     Dosage: UNK
     Route: 065
  14. ACETAMINOPHEN\OXYCODONE HYDROCHLORIDE\OXYCODONE TEREPHTHALATE [Suspect]
     Active Substance: ACETAMINOPHEN\OXYCODONE HYDROCHLORIDE\OXYCODONE TEREPHTHALATE
     Indication: Injury
  15. ACETAMINOPHEN\OXYCODONE HYDROCHLORIDE\OXYCODONE TEREPHTHALATE [Suspect]
     Active Substance: ACETAMINOPHEN\OXYCODONE HYDROCHLORIDE\OXYCODONE TEREPHTHALATE
     Indication: Headache
  16. BUPRENORPHINE [Suspect]
     Active Substance: BUPRENORPHINE
     Indication: Neck pain
     Dosage: UNK
     Route: 062
  17. BUPRENORPHINE [Suspect]
     Active Substance: BUPRENORPHINE
     Indication: Injury
  18. BUPRENORPHINE [Suspect]
     Active Substance: BUPRENORPHINE
     Indication: Headache
  19. BUTRANS [Suspect]
     Active Substance: BUPRENORPHINE
     Indication: Neck pain
     Dosage: UNK
     Route: 062
  20. BUTRANS [Suspect]
     Active Substance: BUPRENORPHINE
     Indication: Injury
  21. BUTRANS [Suspect]
     Active Substance: BUPRENORPHINE
     Indication: Headache
  22. DILAUDID [Suspect]
     Active Substance: HYDROMORPHONE HYDROCHLORIDE
     Indication: Neck pain
     Dosage: UNK
     Route: 048
  23. DILAUDID [Suspect]
     Active Substance: HYDROMORPHONE HYDROCHLORIDE
     Indication: Injury
  24. DILAUDID [Suspect]
     Active Substance: HYDROMORPHONE HYDROCHLORIDE
     Indication: Headache
  25. HYDROMORPHONE HYDROCHLORIDE [Suspect]
     Active Substance: HYDROMORPHONE HYDROCHLORIDE
     Indication: Neck pain
     Dosage: UNK
     Route: 048
  26. HYDROMORPHONE HYDROCHLORIDE [Suspect]
     Active Substance: HYDROMORPHONE HYDROCHLORIDE
     Indication: Injury
  27. HYDROMORPHONE HYDROCHLORIDE [Suspect]
     Active Substance: HYDROMORPHONE HYDROCHLORIDE
     Indication: Headache
  28. MORPHINE SULFATE [Suspect]
     Active Substance: MORPHINE SULFATE
     Indication: Neck pain
     Dosage: UNK
     Route: 048
  29. MORPHINE SULFATE [Suspect]
     Active Substance: MORPHINE SULFATE
     Indication: Injury
  30. MORPHINE SULFATE [Suspect]
     Active Substance: MORPHINE SULFATE
     Indication: Headache
  31. MS CONTIN [Suspect]
     Active Substance: MORPHINE SULFATE
     Indication: Neck pain
     Dosage: UNK
     Route: 065
  32. MS CONTIN [Suspect]
     Active Substance: MORPHINE SULFATE
     Indication: Injury
  33. MS CONTIN [Suspect]
     Active Substance: MORPHINE SULFATE
     Indication: Headache
  34. OXYCONTIN [Suspect]
     Active Substance: OXYCODONE HYDROCHLORIDE
     Indication: Neck pain
     Dosage: UNK
     Route: 065
  35. OXYCONTIN [Suspect]
     Active Substance: OXYCODONE HYDROCHLORIDE
     Indication: Injury
  36. OXYCONTIN [Suspect]
     Active Substance: OXYCODONE HYDROCHLORIDE
     Indication: Headache
  37. OXYCODONE HYDROCHLORIDE [Suspect]
     Active Substance: OXYCODONE HYDROCHLORIDE
     Indication: Neck pain
     Dosage: UNK
     Route: 048
  38. OXYCODONE HYDROCHLORIDE [Suspect]
     Active Substance: OXYCODONE HYDROCHLORIDE
     Indication: Injury
  39. OXYCODONE HYDROCHLORIDE [Suspect]
     Active Substance: OXYCODONE HYDROCHLORIDE
     Indication: Headache
  40. MS CONTIN [Suspect]
     Active Substance: MORPHINE SULFATE
     Indication: Neck pain
     Dosage: UNK
     Route: 048
  41. MS CONTIN [Suspect]
     Active Substance: MORPHINE SULFATE
     Indication: Injury
  42. MS CONTIN [Suspect]
     Active Substance: MORPHINE SULFATE
     Indication: Headache
  43. OXYCONTIN [Suspect]
     Active Substance: OXYCODONE HYDROCHLORIDE
     Indication: Neck pain
     Dosage: UNK
     Route: 048
  44. OXYCONTIN [Suspect]
     Active Substance: OXYCODONE HYDROCHLORIDE
     Indication: Injury
  45. OXYCONTIN [Suspect]
     Active Substance: OXYCODONE HYDROCHLORIDE
     Indication: Headache

REACTIONS (5)
  - Emotional distress [Unknown]
  - Tooth loss [Unknown]
  - Depressed level of consciousness [Unknown]
  - Amnesia [Unknown]
  - Drug dependence [Unknown]
